FAERS Safety Report 5477204-2 (Version None)
Quarter: 2007Q4

REPORT INFORMATION
  Report Type: 
  Country: None (occurrence: None)
  Receive Date: 20071004
  Receipt Date: 20071002
  Transmission Date: 20080405
  Serious: Yes (Hospitalization)
  Sender: FDA-Public Use
  Company Number: B0487110A

PATIENT
  Age: 35 Year
  Sex: Female

DRUGS (4)
  1. SAWACILLIN [Suspect]
     Dosage: 250MG THREE TIMES PER DAY
     Route: 048
     Dates: start: 20070807, end: 20070812
  2. LOXONIN [Concomitant]
     Dosage: 60MG THREE TIMES PER DAY
     Route: 048
     Dates: start: 20070807, end: 20070812
  3. ASTOMIN [Concomitant]
     Dosage: 10MG THREE TIMES PER DAY
     Route: 048
     Dates: start: 20070807, end: 20070812
  4. ALLELOCK [Concomitant]
     Dosage: 5MG TWICE PER DAY
     Route: 048
     Dates: start: 20070807, end: 20070812

REACTIONS (6)
  - ABDOMINAL PAIN UPPER [None]
  - ALANINE AMINOTRANSFERASE INCREASED [None]
  - ASPARTATE AMINOTRANSFERASE INCREASED [None]
  - HEPATITIS ACUTE [None]
  - LIVER DISORDER [None]
  - VOMITING [None]
